FAERS Safety Report 17335990 (Version 1)
Quarter: 2020Q1

REPORT INFORMATION
  Report Type: Spontaneous
  Country: FR (occurrence: FR)
  Receive Date: 20200128
  Receipt Date: 20200128
  Transmission Date: 20200409
  Serious: Yes (Other)
  Sender: FDA-Public Use
  Company Number: FR-PFIZER INC-2020031527

PATIENT
  Age: 50 Year
  Sex: Male

DRUGS (4)
  1. IMOVANE [Suspect]
     Active Substance: ZOPICLONE
     Dosage: 10 DF, SINGLE
     Route: 048
     Dates: start: 20170521, end: 20170521
  2. BACLOFEN. [Concomitant]
     Active Substance: BACLOFEN
     Dosage: UNK
  3. VENLAFAXINE HCL [Suspect]
     Active Substance: VENLAFAXINE HYDROCHLORIDE
     Dosage: 750 MG, SINGLE
     Route: 048
     Dates: start: 20170521, end: 20170521
  4. SERESTA [Suspect]
     Active Substance: OXAZEPAM
     Dosage: 300 MG, SINGLE
     Route: 048
     Dates: start: 20170521, end: 20170521

REACTIONS (3)
  - Suicide attempt [Unknown]
  - Toxicity to various agents [Recovered/Resolved]
  - Somnolence [Recovered/Resolved]

NARRATIVE: CASE EVENT DATE: 20170521
